FAERS Safety Report 8102972-0 (Version None)
Quarter: 2012Q1

REPORT INFORMATION
  Report Type: 
  Country: None (occurrence: None)
  Receive Date: 20120201
  Receipt Date: 20120127
  Transmission Date: 20120608
  Serious: Yes (Hospitalization)
  Sender: FDA-Public Use
  Company Number: GB-ASTELLAS-2012EU000734

PATIENT
  Age: 6 Year
  Sex: Male

DRUGS (2)
  1. OXYBUTYNIN [Concomitant]
     Dosage: UNK
     Route: 065
  2. VESICARE [Suspect]
     Indication: ENURESIS
     Dosage: 5 MG, UNKNOWN/D
     Route: 048
     Dates: start: 20111128

REACTIONS (4)
  - CONTUSION [None]
  - EPISTAXIS [None]
  - GINGIVAL BLEEDING [None]
  - PLATELET COUNT DECREASED [None]
